FAERS Safety Report 20993393 (Version 1)
Quarter: 2022Q2

REPORT INFORMATION
  Report Type: Spontaneous
  Country: US (occurrence: US)
  Receive Date: 20220622
  Receipt Date: 20220622
  Transmission Date: 20220720
  Serious: Yes (Other)
  Sender: FDA-Public Use
  Company Number: US-JNJFOC-20220627055

PATIENT
  Sex: Female

DRUGS (1)
  1. TOPAMAX [Suspect]
     Active Substance: TOPIRAMATE
     Indication: Migraine
     Dosage: 1 (HOUR OF SLEEP)
     Route: 048

REACTIONS (15)
  - Craniocerebral injury [Unknown]
  - Glaucoma [Unknown]
  - Suicidal ideation [Not Recovered/Not Resolved]
  - Bone demineralisation [Unknown]
  - Abnormal behaviour [Unknown]
  - Taste disorder [Unknown]
  - Thirst [Unknown]
  - Muscle spasms [Unknown]
  - Speech disorder [Unknown]
  - Mood swings [Unknown]
  - Vertigo [Unknown]
  - Weight decreased [Unknown]
  - Confusional state [Unknown]
  - Fatigue [Unknown]
  - Headache [Not Recovered/Not Resolved]
